FAERS Safety Report 18656269 (Version 1)
Quarter: 2020Q4

REPORT INFORMATION
  Report Type: Spontaneous
  Country: US (occurrence: US)
  Receive Date: 20201223
  Receipt Date: 20201223
  Transmission Date: 20210114
  Serious: No
  Sender: FDA-Public Use
  Company Number: US-CELGENEUS-USA-20200905805

PATIENT
  Sex: Female

DRUGS (1)
  1. VIDAZA [Suspect]
     Active Substance: AZACITIDINE
     Indication: MYELODYSPLASTIC SYNDROME
     Dosage: DOSE: UNAVAILABLE; FREQ: ^28 DAY CYCLE FOR ONE WEEK^
     Route: 065

REACTIONS (2)
  - Haemoglobin decreased [Unknown]
  - Platelet count decreased [Unknown]
